FAERS Safety Report 15427583 (Version 3)
Quarter: 2018Q4

REPORT INFORMATION
  Report Type: Report from Study
  Country: US (occurrence: US)
  Receive Date: 20180925
  Receipt Date: 20181203
  Transmission Date: 20190204
  Serious: Yes (Life-Threatening, Hospitalization, Other)
  Sender: FDA-Public Use
  Company Number: US-009507513-1809USA008409

PATIENT
  Age: 67 Year
  Sex: Male
  Weight: 81.2 kg

DRUGS (21)
  1. NOXAFIL [Interacting]
     Active Substance: POSACONAZOLE
     Dosage: 200 MG (5 ML), TID
     Route: 048
     Dates: start: 20180831, end: 201809
  2. CARBONYL IRON [Concomitant]
     Active Substance: IRON
  3. NOXAFIL [Interacting]
     Active Substance: POSACONAZOLE
     Dosage: 400 MG THREE TIMES DAILY
     Route: 048
     Dates: start: 201809, end: 2018
  4. DOXAZOSIN [Concomitant]
     Active Substance: DOXAZOSIN\DOXAZOSIN MESYLATE
     Indication: BENIGN PROSTATIC HYPERPLASIA
     Dosage: UNK
  5. CASPOFUNGIN ACETATE. [Concomitant]
     Active Substance: CASPOFUNGIN ACETATE
     Dosage: UNK
     Dates: end: 20180831
  6. OMEPRAZOLE. [Interacting]
     Active Substance: OMEPRAZOLE
     Indication: HIATUS HERNIA
  7. ROZEREM [Concomitant]
     Active Substance: RAMELTEON
  8. OMEPRAZOLE. [Interacting]
     Active Substance: OMEPRAZOLE
     Indication: GASTROOESOPHAGEAL REFLUX DISEASE
     Dosage: UNK
  9. AVODART [Concomitant]
     Active Substance: DUTASTERIDE
     Indication: BENIGN PROSTATIC HYPERPLASIA
     Dosage: UNK
  10. VITAMINS (UNSPECIFIED) [Concomitant]
     Active Substance: VITAMINS
  11. OMEPRAZOLE. [Interacting]
     Active Substance: OMEPRAZOLE
     Indication: BARRETT^S OESOPHAGUS
  12. PREDNISONE. [Concomitant]
     Active Substance: PREDNISONE
  13. METOPROLOL. [Concomitant]
     Active Substance: METOPROLOL
     Indication: CORONARY ARTERY DISEASE
     Dosage: UNK
  14. DARBEPOETIN ALFA [Concomitant]
     Active Substance: DARBEPOETIN ALFA
  15. SUCROFERRIC OXYHYDROXIDE [Concomitant]
     Active Substance: FERRIC OXYHYDROXIDE
  16. LEVOTHYROXINE SODIUM. [Concomitant]
     Active Substance: LEVOTHYROXINE SODIUM
     Indication: HYPOTHYROIDISM
     Dosage: UNK
  17. VORICONAZOLE. [Concomitant]
     Active Substance: VORICONAZOLE
     Indication: ASPERGILLUS INFECTION
     Dosage: UNK
     Dates: start: 201807
  18. NOXAFIL [Suspect]
     Active Substance: POSACONAZOLE
     Indication: BRONCHOPULMONARY ASPERGILLOSIS
     Dosage: 200 MG (5 ML) TID
     Route: 048
     Dates: start: 20180729, end: 2018
  19. CALCIUM ACETATE. [Concomitant]
     Active Substance: CALCIUM ACETATE
     Dosage: UNK
  20. PRAVASTATIN. [Concomitant]
     Active Substance: PRAVASTATIN
  21. CHOLECALCIFEROL [Concomitant]
     Active Substance: CHOLECALCIFEROL

REACTIONS (18)
  - Troponin increased [Unknown]
  - Aspartate aminotransferase increased [Recovered/Resolved]
  - Normocytic anaemia [Recovering/Resolving]
  - Prescribed overdose [Unknown]
  - Bronchial secretion retention [Recovering/Resolving]
  - Leukopenia [Recovered/Resolved]
  - Abdominal pain [Recovered/Resolved]
  - Flatulence [Unknown]
  - Alanine aminotransferase increased [Recovered/Resolved]
  - Lactic acidosis [Recovering/Resolving]
  - Constipation [Unknown]
  - Respiratory failure [Recovering/Resolving]
  - Drug interaction [Unknown]
  - Pyrexia [Recovered/Resolved]
  - Thrombocytopenia [Unknown]
  - Pulmonary thrombosis [Recovering/Resolving]
  - Drug level below therapeutic [Unknown]
  - Cholelithiasis [Unknown]

NARRATIVE: CASE EVENT DATE: 2018
